FAERS Safety Report 6459992-1 (Version None)
Quarter: 2009Q4

REPORT INFORMATION
  Report Type: 
  Country: None (occurrence: None)
  Receive Date: 20091129
  Receipt Date: 20091118
  Transmission Date: 20100525
  Serious: Yes (Hospitalization)
  Sender: FDA-Public Use
  Company Number: PHHO2009CA03850

PATIENT
  Sex: Male
  Weight: 72.6 kg

DRUGS (2)
  1. AFINITOR [Suspect]
     Indication: NON-SMALL CELL LUNG CANCER
     Dosage: 5MG
     Route: 048
     Dates: start: 20090226, end: 20090310
  2. ERLOTINIB [Suspect]
     Indication: NON-SMALL CELL LUNG CANCER
     Dosage: UNKNOWN
     Dates: start: 20090226

REACTIONS (8)
  - ANAEMIA [None]
  - DYSPNOEA [None]
  - HYPERGLYCAEMIA [None]
  - HYPONATRAEMIA [None]
  - LUNG INFILTRATION [None]
  - MALIGNANT NEOPLASM PROGRESSION [None]
  - PNEUMONIA [None]
  - PNEUMONITIS [None]
